FAERS Safety Report 9555574 (Version 1)
Quarter: 2013Q3

REPORT INFORMATION
  Report Type: Spontaneous
  Country: US (occurrence: None)
  Receive Date: 20130904
  Receipt Date: 20130904
  Transmission Date: 20140515
  Serious: Yes (Other)
  Sender: FDA-Public Use
  Company Number: A-US2012-74901

PATIENT
  Age: 58 Year
  Sex: Female

DRUGS (5)
  1. VELETRI [Suspect]
     Indication: PULMONARY ARTERIAL HYPERTENSION
     Dosage: 11.5 NG/KG, PER MIN, INTRAVENOUS
     Route: 042
     Dates: start: 20120810
  2. LETAIRIS (AMBRISENTAN) (TABLETS) [Concomitant]
  3. SILDENAFIL (SILDENAFIL CITRATE) [Concomitant]
  4. COUMADIN (WARFARIN SODIUM) [Concomitant]
  5. ASPIRIN (ACETYLSALICYLIC ACID) [Concomitant]

REACTIONS (5)
  - Headache [None]
  - Pain in jaw [None]
  - Nausea [None]
  - Vomiting [None]
  - Diarrhoea [None]
